FAERS Safety Report 11402337 (Version 3)
Quarter: 2015Q3

REPORT INFORMATION
  Report Type: Report from Study
  Country: US (occurrence: US)
  Receive Date: 20150821
  Receipt Date: 20150925
  Transmission Date: 20151125
  Serious: No
  Sender: FDA-Public Use
  Company Number: US-AMGEN-USASP2015080661

PATIENT
  Age: 68 Year
  Sex: Female

DRUGS (3)
  1. ENBREL [Suspect]
     Active Substance: ETANERCEPT
     Indication: RHEUMATOID ARTHRITIS
     Dosage: 50 MG, QWK
     Route: 065
     Dates: start: 201505, end: 20150824
  2. MELOXICAM. [Concomitant]
     Active Substance: MELOXICAM
     Indication: INFLAMMATION
     Dosage: UNK
  3. FOLIC ACID. [Concomitant]
     Active Substance: FOLIC ACID
     Dosage: UNK

REACTIONS (11)
  - Headache [Unknown]
  - Cough [Unknown]
  - Feeling abnormal [Unknown]
  - Balance disorder [Unknown]
  - Oropharyngeal pain [Unknown]
  - Muscular weakness [Unknown]
  - Pain in extremity [Unknown]
  - Device issue [Unknown]
  - Fatigue [Unknown]
  - Hepatic enzyme increased [Unknown]
  - Depression [Unknown]

NARRATIVE: CASE EVENT DATE: 2015
